FAERS Safety Report 4882359-4 (Version None)
Quarter: 2006Q1

REPORT INFORMATION
  Report Type: 
  Country: None (occurrence: None)
  Receive Date: 20060117
  Receipt Date: 20060105
  Transmission Date: 20060701
  Serious: Yes (Life-Threatening, Hospitalization)
  Sender: FDA-Public Use
  Company Number: DE-ROCHE-430749

PATIENT
  Age: 57 Year
  Sex: Female
  Weight: 79 kg

DRUGS (2)
  1. CAPECITABINE [Suspect]
     Indication: BREAST CANCER
     Route: 048
     Dates: start: 20050512, end: 20050526
  2. PACLITAXEL [Suspect]
     Indication: BREAST CANCER
     Route: 042
     Dates: start: 20050512, end: 20050512

REACTIONS (8)
  - BLOOD LACTIC ACID INCREASED [None]
  - COAGULOPATHY [None]
  - DIARRHOEA [None]
  - HEPATIC ENZYME INCREASED [None]
  - ILEUS [None]
  - NECROTISING COLITIS [None]
  - PYREXIA [None]
  - VOMITING [None]
